FAERS Safety Report 6715331-X (Version None)
Quarter: 2010Q2

REPORT INFORMATION
  Report Type: 
  Country: None (occurrence: None)
  Receive Date: 20100507
  Receipt Date: 20100428
  Transmission Date: 20101027
  Serious: Yes (Other)
  Sender: FDA-Public Use
  Company Number: CA-JNJFOC-20100500375

PATIENT
  Sex: Female
  Weight: 74 kg

DRUGS (11)
  1. REMICADE [Suspect]
     Indication: CROHN'S DISEASE
     Route: 042
  2. REMICADE [Suspect]
     Route: 042
  3. WARFARIN [Concomitant]
     Indication: DEEP VEIN THROMBOSIS
     Route: 048
  4. IMURAN [Concomitant]
     Indication: CROHN'S DISEASE
     Route: 048
  5. LIPITOR [Concomitant]
     Indication: BLOOD CHOLESTEROL INCREASED
  6. VITAMIN D [Concomitant]
  7. AVANDIA [Concomitant]
     Route: 048
  8. CALCIUM [Concomitant]
  9. VITAMIN B-12 [Concomitant]
  10. SYNTHROID [Concomitant]
  11. CELEXA [Concomitant]

REACTIONS (7)
  - BODY TEMPERATURE INCREASED [None]
  - INFUSION RELATED REACTION [None]
  - KIDNEY INFECTION [None]
  - PRURITUS [None]
  - RASH MACULAR [None]
  - SYNCOPE [None]
  - URTICARIA [None]
